FAERS Safety Report 16476100 (Version 2)
Quarter: 2019Q3

REPORT INFORMATION
  Report Type: Spontaneous
  Country: US (occurrence: US)
  Receive Date: 20190625
  Receipt Date: 20190829
  Transmission Date: 20191004
  Serious: Yes (Disabling, Other)
  Sender: FDA-Public Use
  Company Number: US-AMGEN-USASP2019100142

PATIENT
  Age: 63 Year
  Sex: Female
  Weight: 71.67 kg

DRUGS (8)
  1. XELJANZ [Suspect]
     Active Substance: TOFACITINIB CITRATE
     Indication: RHEUMATOID ARTHRITIS
     Dosage: 5 MILLIGRAM, BID
     Route: 048
     Dates: start: 20190403
  2. XELJANZ [Suspect]
     Active Substance: TOFACITINIB CITRATE
     Indication: SYSTEMIC LUPUS ERYTHEMATOSUS
     Dosage: 5 MILLIGRAM, QD
     Route: 048
     Dates: end: 20190807
  3. METHOTREXATE. [Concomitant]
     Active Substance: METHOTREXATE
     Indication: RHEUMATOID ARTHRITIS
     Dosage: 25 MILLIGRAM, QWK
     Route: 058
  4. LEVOTHYROXINE. [Concomitant]
     Active Substance: LEVOTHYROXINE
     Dosage: UNK
  5. PREDNISONE. [Concomitant]
     Active Substance: PREDNISONE
     Dosage: 30 MILLIGRAM, QD
     Route: 065
     Dates: start: 201901
  6. PREDNISONE. [Concomitant]
     Active Substance: PREDNISONE
     Dosage: 1 MILLIGRAM, QD
     Route: 065
     Dates: start: 2019
  7. LEVOTHYROXINE. [Concomitant]
     Active Substance: LEVOTHYROXINE
     Dosage: UNK (DOSE DECREASED)
     Dates: start: 20190516
  8. ENBREL [Suspect]
     Active Substance: ETANERCEPT
     Indication: PRODUCT USED FOR UNKNOWN INDICATION
     Dosage: UNK
     Route: 065
     Dates: end: 201901

REACTIONS (22)
  - Gait disturbance [Not Recovered/Not Resolved]
  - Cough [Recovered/Resolved]
  - Abdominal pain [Unknown]
  - Scratch [Recovering/Resolving]
  - Skin swelling [Recovering/Resolving]
  - Abdominal distension [Unknown]
  - Constipation [Unknown]
  - Mucosal disorder [Unknown]
  - Hyperthyroidism [Recovered/Resolved]
  - Sexually transmitted disease [Unknown]
  - Diverticulitis [Unknown]
  - Intraocular pressure increased [Not Recovered/Not Resolved]
  - Hypermobility syndrome [Not Recovered/Not Resolved]
  - Diarrhoea [Unknown]
  - Dry eye [Unknown]
  - Osteoarthritis [Unknown]
  - Glomerular filtration rate decreased [Unknown]
  - Osteopenia [Not Recovered/Not Resolved]
  - Fibromyalgia [Unknown]
  - Rash [Recovered/Resolved]
  - Therapeutic product effect decreased [Unknown]
  - Erythema [Recovering/Resolving]

NARRATIVE: CASE EVENT DATE: 2012
